FAERS Safety Report 15275431 (Version 3)
Quarter: 2018Q3

REPORT INFORMATION
  Report Type: Spontaneous
  Country: CN (occurrence: CN)
  Receive Date: 20180814
  Receipt Date: 20180828
  Transmission Date: 20181010
  Serious: Yes (Other)
  Sender: FDA-Public Use
  Company Number: CN-GLAXOSMITHKLINE-CN2018GSK143203

PATIENT
  Age: 13 Year
  Sex: Male

DRUGS (1)
  1. SERETIDE [Suspect]
     Active Substance: FLUTICASONE PROPIONATE\SALMETEROL XINAFOATE
     Indication: ASTHMA
     Dosage: UNK
     Route: 055

REACTIONS (5)
  - Airway complication of anaesthesia [Recovered/Resolved]
  - Suspected counterfeit product [Unknown]
  - Dyspnoea [Unknown]
  - Drug ineffective [Recovered/Resolved]
  - Nasal discomfort [Unknown]
